FAERS Safety Report 7775200-3 (Version None)
Quarter: 2011Q3

REPORT INFORMATION
  Report Type: 
  Country: None (occurrence: None)
  Receive Date: 20110923
  Receipt Date: 20110914
  Transmission Date: 20111222
  Serious: Yes (Death, Hospitalization)
  Sender: FDA-Public Use
  Company Number: JP-BRISTOL-MYERS SQUIBB COMPANY-16076812

PATIENT
  Age: 28 Year
  Sex: Male

DRUGS (4)
  1. ENTECAVIR [Suspect]
  2. INTERFERON BETA NOS [Suspect]
  3. METHYLPREDNISOLONE ACETATE [Suspect]
  4. FUNGIZONE [Suspect]
     Indication: INFECTION PROPHYLAXIS

REACTIONS (2)
  - ACUTE RESPIRATORY DISTRESS SYNDROME [None]
  - HEPATITIS B [None]
